FAERS Safety Report 6753676-8 (Version None)
Quarter: 2010Q2

REPORT INFORMATION
  Report Type: 
  Country: None (occurrence: None)
  Receive Date: 20100603
  Receipt Date: 20100520
  Transmission Date: 20101027
  Serious: Yes (Other)
  Sender: FDA-Public Use
  Company Number: SE-MYLANLABS-2010S1008895

PATIENT
  Age: 54 Year
  Sex: Female

DRUGS (5)
  1. FLUOXETINE [Suspect]
     Indication: DRUG USE FOR UNKNOWN INDICATION
     Dates: start: 20100511
  2. FLUOXETINE [Suspect]
     Dates: start: 20100427, end: 20100511
  3. FLUOXETINE [Suspect]
     Dates: start: 20100421, end: 20100427
  4. FLUOXETINE [Suspect]
     Dates: start: 20090801
  5. AERIUS [Concomitant]
     Indication: SEASONAL ALLERGY

REACTIONS (3)
  - BLOOD PRESSURE INCREASED [None]
  - HEADACHE [None]
  - VAGINAL HAEMORRHAGE [None]
